FAERS Safety Report 24167506 (Version 1)
Quarter: 2024Q3

REPORT INFORMATION
  Report Type: Spontaneous
  Country: CN (occurrence: CN)
  Receive Date: 20240802
  Receipt Date: 20240802
  Transmission Date: 20241017
  Serious: Yes (Hospitalization)
  Sender: BAYER
  Company Number: CN-BAYER-2024A111906

PATIENT
  Age: 62 Year
  Sex: Male

DRUGS (3)
  1. ULTRAVIST [Suspect]
     Active Substance: IOPROMIDE
     Indication: Computerised tomogram head
     Dosage: 40 ML, ONCE
     Route: 042
     Dates: start: 20240702, end: 20240702
  2. ULTRAVIST [Suspect]
     Active Substance: IOPROMIDE
     Indication: Computerised tomogram neck
  3. ULTRAVIST [Suspect]
     Active Substance: IOPROMIDE
     Indication: Brain contusion

REACTIONS (7)
  - Contrast media allergy [Recovering/Resolving]
  - Headache [None]
  - Chest discomfort [None]
  - Rash pruritic [Recovering/Resolving]
  - Confusional state [Recovering/Resolving]
  - Anisocoria [None]
  - Blood pressure diastolic decreased [Recovered/Resolved]

NARRATIVE: CASE EVENT DATE: 20240702
